FAERS Safety Report 6644061-8 (Version None)
Quarter: 2010Q1

REPORT INFORMATION
  Report Type: 
  Country: None (occurrence: None)
  Receive Date: 20100322
  Receipt Date: 20100310
  Transmission Date: 20100710
  Serious: Yes (Other)
  Sender: FDA-Public Use
  Company Number: JP-ELI_LILLY_AND_COMPANY-JP201003003577

PATIENT
  Age: 54 Year
  Sex: Male

DRUGS (4)
  1. ZYPREXA [Suspect]
     Indication: FRONTOTEMPORAL DEMENTIA
     Route: 048
  2. HALOPERIDOL [Concomitant]
     Indication: FRONTOTEMPORAL DEMENTIA
     Route: 048
  3. LEVOMEPROMAZINE [Concomitant]
     Indication: FRONTOTEMPORAL DEMENTIA
     Route: 048
  4. ZOTEPINE [Concomitant]
     Indication: FRONTOTEMPORAL DEMENTIA
     Route: 048

REACTIONS (3)
  - HALLUCINATION, VISUAL [None]
  - OFF LABEL USE [None]
  - SEDATION [None]
